FAERS Safety Report 23651803 (Version 1)
Quarter: 2024Q1

REPORT INFORMATION
  Report Type: Other
  Country: US (occurrence: None)
  Receive Date: 20240320
  Receipt Date: 20240320
  Transmission Date: 20240410
  Serious: Yes (Other)
  Sender: FDA-Public Use
  Company Number: US-ROCHE-3527572

PATIENT
  Age: 77 Year
  Sex: Male

DRUGS (2)
  1. COTELLIC [Suspect]
     Active Substance: COBIMETINIB
     Indication: Malignant melanoma
     Dosage: TAKE 2 TABLETS (40MG) BY MOUTH ONCE DAILY ON DAYS 1 THROUGH 21 OF A 28 DAY CYCLE (DOSE CHANGE)
     Route: 048
  2. ZELBORAF [Suspect]
     Active Substance: VEMURAFENIB
     Indication: Product used for unknown indication
     Dosage: TAKE 3 TABLET(S) BY MOUTH TWICE A DAY ON DAYS 1 THROUGH 28 (OF A 28 DAY CYCLE) (DOSE CHANGE)
     Route: 048

REACTIONS (2)
  - Neoplasm progression [Unknown]
  - Liver disorder [Unknown]
